FAERS Safety Report 7617026-7 (Version None)
Quarter: 2011Q3

REPORT INFORMATION
  Report Type: 
  Country: None (occurrence: None)
  Receive Date: 20110718
  Receipt Date: 20091129
  Transmission Date: 20111222
  Serious: Yes (Death, Other)
  Sender: FDA-Public Use
  Company Number: US-BAYER-200941237NA

PATIENT
  Age: 76 Year
  Sex: Male
  Weight: 93 kg

DRUGS (17)
  1. FERROUS SULFATE TAB [Concomitant]
     Route: 048
  2. HEPARIN [Concomitant]
     Indication: POST PROCEDURAL HAEMORRHAGE
     Dosage: 45000 U, UNK
     Route: 042
     Dates: start: 20060613, end: 20060613
  3. LIDOCAINE [Concomitant]
     Indication: CARDIAC OPERATION
     Dosage: 200 MG, UNK
     Route: 042
     Dates: start: 20060530, end: 20060530
  4. PREVACID [Concomitant]
     Route: 048
  5. PHENYLEPHRINE HCL [Concomitant]
     Dosage: 10 MG, UNK
     Route: 042
     Dates: start: 20060530, end: 20060530
  6. TRASYLOL [Suspect]
     Indication: PRODUCT USED FOR UNKNOWN INDICATION
     Dosage: UNK
     Route: 042
     Dates: start: 20060612
  7. CALCIUM CHLORIDE [Concomitant]
     Dosage: 1 GM, UNK
     Route: 042
     Dates: start: 20060530, end: 20060530
  8. RANITIDINE [Concomitant]
     Route: 048
  9. METOPROLOL TARTRATE [Concomitant]
     Indication: CARDIAC DISORDER
     Dosage: 50 MG, UNK
     Route: 048
  10. FOSINOPRIL SODIUM [Concomitant]
     Dosage: 20 MG, UNK
     Route: 048
  11. OXYBUTYNIN [Concomitant]
     Route: 048
  12. FENTANYL-100 [Concomitant]
     Indication: SEDATION
     Dosage: 50 MCG, UNK
     Route: 042
     Dates: start: 20060613, end: 20060613
  13. TRASYLOL [Suspect]
     Indication: CORONARY ARTERY BYPASS
     Dosage: UNK
     Route: 042
     Dates: start: 20060530
  14. MANNITOL [Concomitant]
     Dosage: 250GMS, UNK
     Route: 042
     Dates: start: 20060530, end: 20060530
  15. CIALIS [Concomitant]
     Route: 048
  16. QUININE SULFATE [Concomitant]
     Route: 048
  17. AMICAR [Concomitant]
     Dosage: 5 GMS, UNK
     Route: 042
     Dates: start: 20060530, end: 20060530

REACTIONS (13)
  - RENAL FAILURE [None]
  - MULTI-ORGAN FAILURE [None]
  - UNEVALUABLE EVENT [None]
  - FEAR [None]
  - INJURY [None]
  - DEATH [None]
  - RENAL IMPAIRMENT [None]
  - ANXIETY [None]
  - RENAL INJURY [None]
  - PAIN [None]
  - ANHEDONIA [None]
  - EMOTIONAL DISTRESS [None]
  - STRESS [None]
